FAERS Safety Report 4688817-X (Version None)
Quarter: 2005Q2

REPORT INFORMATION
  Report Type: 
  Country: None (occurrence: None)
  Receive Date: 20050613
  Receipt Date: 20050606
  Transmission Date: 20051028
  Serious: Yes (Other)
  Sender: FDA-Public Use
  Company Number: 13148

PATIENT
  Age: 26 Year
  Sex: Female

DRUGS (2)
  1. BUPROPION HCL [Suspect]
     Indication: MAJOR DEPRESSION
     Dosage: 150MG PER DAY
     Dates: start: 20040910
  2. UNSPECIFIED SSRI [Concomitant]

REACTIONS (1)
  - TACHYCARDIA [None]
